FAERS Safety Report 14034819 (Version 1)
Quarter: 2017Q4

REPORT INFORMATION
  Report Type: Report from Study
  Country: US (occurrence: US)
  Receive Date: 20171003
  Receipt Date: 20171003
  Transmission Date: 20180321
  Serious: Yes (Other)
  Sender: FDA-Public Use
  Company Number: US-ROCHE-2000899

PATIENT
  Age: 1 Year

DRUGS (3)
  1. ALTEPLASE. [Suspect]
     Active Substance: ALTEPLASE
     Indication: BRACHIOCEPHALIC VEIN THROMBOSIS
  2. ALTEPLASE. [Suspect]
     Active Substance: ALTEPLASE
     Indication: JUGULAR VEIN THROMBOSIS
     Route: 042
  3. ALTEPLASE. [Suspect]
     Active Substance: ALTEPLASE
     Indication: VENA CAVA THROMBOSIS

REACTIONS (2)
  - Subdural haemorrhage [Unknown]
  - Pulmonary embolism [Unknown]
